FAERS Safety Report 4836026-3 (Version None)
Quarter: 2005Q4

REPORT INFORMATION
  Report Type: 
  Country: None (occurrence: None)
  Receive Date: 20051123
  Receipt Date: 20051004
  Transmission Date: 20060501
  Serious: Yes (Hospitalization)
  Sender: FDA-Public Use
  Company Number: US-MERCK-0510USA03116

PATIENT
  Age: 51 Year
  Sex: Male
  Weight: 95 kg

DRUGS (16)
  1. VIOXX [Suspect]
     Indication: ARTHRITIS
     Route: 048
     Dates: start: 20000101, end: 20031101
  2. SOMA [Concomitant]
     Route: 065
  3. LORCET-HD [Concomitant]
     Route: 065
  4. PEN-VEE K [Concomitant]
     Route: 065
  5. HYDROCODONE BITARTRATE [Concomitant]
     Route: 065
  6. ZOLOFT [Concomitant]
     Route: 065
  7. SKELAXIN [Concomitant]
     Route: 065
  8. WELLBUTRIN [Concomitant]
     Route: 065
  9. DOCUSATE CALCIUM [Concomitant]
     Route: 065
  10. ALPRAZOLAM [Concomitant]
     Route: 065
  11. LOPID [Concomitant]
     Route: 048
  12. GLUCOPHAGE [Concomitant]
     Route: 065
  13. ASPIRIN [Concomitant]
     Route: 048
  14. NEURONTIN [Concomitant]
     Route: 048
  15. NORFLEX [Concomitant]
     Route: 048
  16. ELAVIL [Concomitant]
     Route: 048

REACTIONS (5)
  - ACUTE MYOCARDIAL INFARCTION [None]
  - ARTERIOSCLEROSIS CORONARY ARTERY [None]
  - DEEP VEIN THROMBOSIS [None]
  - DIABETES MELLITUS INADEQUATE CONTROL [None]
  - INTERVERTEBRAL DISC PROTRUSION [None]
